FAERS Safety Report 6186249-9 (Version None)
Quarter: 2009Q2

REPORT INFORMATION
  Report Type: 
  Country: None (occurrence: None)
  Receive Date: 20090511
  Receipt Date: 20090508
  Transmission Date: 20091009
  Serious: Yes (Death, Hospitalization, Other)
  Sender: FDA-Public Use
  Company Number: PHEH2009US04583

PATIENT
  Sex: Male

DRUGS (1)
  1. EXJADE [Suspect]
     Indication: CHRONIC LYMPHOCYTIC LEUKAEMIA
     Dosage: 1625 MG, QD
     Route: 048
     Dates: start: 20090217, end: 20090504

REACTIONS (3)
  - DEATH [None]
  - NEOPLASM MALIGNANT [None]
  - PNEUMONIA [None]
